FAERS Safety Report 10399982 (Version 1)
Quarter: 2014Q1

REPORT INFORMATION
  Report Type: Spontaneous
  Country: US (occurrence: None)
  Receive Date: 20130815
  Receipt Date: 20130815
  Transmission Date: 20141002
  Serious: Yes (Life-Threatening, Hospitalization, Other)
  Sender: FDA-Public Use
  Company Number: ADR-2013-00559

PATIENT
  Age: 15 Year
  Sex: Male

DRUGS (1)
  1. LIORESAL INTRATHECAL (BACLOFEN INJECTION)2000 MCG/ML [Suspect]
     Indication: MUSCLE SPASTICITY

REACTIONS (7)
  - Depressed level of consciousness [None]
  - Hypertonia [None]
  - Somnolence [None]
  - Therapeutic response decreased [None]
  - Incorrect dose administered [None]
  - Accidental overdose [None]
  - Respiratory depression [None]
